FAERS Safety Report 9798888 (Version 1)
Quarter: 2014Q1

REPORT INFORMATION
  Report Type: Spontaneous
  Country: US (occurrence: None)
  Receive Date: 20140103
  Receipt Date: 20140103
  Transmission Date: 20141002
  Serious: Yes (Life-Threatening, Hospitalization)
  Sender: FDA-Public Use
  Company Number: None

PATIENT
  Age: 78 Year
  Sex: Male
  Weight: 90.72 kg

DRUGS (1)
  1. MELOXICAM [Suspect]
     Indication: INFLAMMATION
     Dosage: 1 TABLET 1 DAILY
     Dates: start: 20131011, end: 20131021

REACTIONS (1)
  - Cerebrovascular accident [None]
